FAERS Safety Report 13278454 (Version 2)
Quarter: 2020Q3

REPORT INFORMATION
  Report Type: Report from Study
  Country: TW (occurrence: TW)
  Receive Date: 20170228
  Receipt Date: 20170316
  Transmission Date: 20201105
  Serious: Yes (Hospitalization)
  Sender: FDA-Public Use
  Company Number: TW-PFIZER INC-2016598107

PATIENT
  Age: 60 Year
  Sex: Male

DRUGS (18)
  1. BISACODYL. [Concomitant]
     Active Substance: BISACODYL
     Indication: CONSTIPATION
     Dosage: 10 MG HS
     Route: 048
     Dates: start: 20160930
  2. CEFADROXIL MONOHYDRATE [Concomitant]
     Active Substance: CEFADROXIL
     Indication: INFECTION
     Dosage: 500.000 MG BID
     Route: 048
     Dates: start: 20160907
  3. CIPROFLOXACIN HCL [Concomitant]
     Active Substance: CIPROFLOXACIN HYDROCHLORIDE
     Indication: INFECTION
     Dosage: 250.000 MG Q12H
     Route: 048
     Dates: start: 20161130
  4. TREMELIMUMAB. [Suspect]
     Active Substance: TREMELIMUMAB
     Dosage: 75 MG, Q4WEEKS
     Route: 042
     Dates: start: 20161109, end: 20161109
  5. NEOMYCIN SULFATE. [Concomitant]
     Active Substance: NEOMYCIN SULFATE
     Indication: INFECTION
     Dosage: 40 MG BID
     Route: 061
  6. LACTULOSE. [Concomitant]
     Active Substance: LACTULOSE
     Indication: CONSTIPATION
     Dosage: 20 ML, 2X/DAY
     Route: 048
     Dates: start: 20131207
  7. SENNOSIDE A+B CALCIUM [Concomitant]
     Active Substance: SENNOSIDES A AND B
     Indication: CONSTIPATION
     Dosage: 20 PC HS, 1X/DAY
     Route: 048
     Dates: start: 20161130, end: 20161213
  8. ULTRACET [Concomitant]
     Active Substance: ACETAMINOPHEN\TRAMADOL HYDROCHLORIDE
     Indication: PAIN
     Dosage: 1 PC Q6H
     Route: 048
     Dates: start: 20160826
  9. PROCHLORPERAZINE. [Concomitant]
     Active Substance: PROCHLORPERAZINE
     Indication: VOMITING
     Dosage: 5 MG, 3X/DAY (ONCE EVERY 8 HOURS)
     Route: 042
     Dates: start: 20161214
  10. MEDI4736 [Suspect]
     Active Substance: DURVALUMAB
     Dosage: 1.5 G, Q4WEEKS
     Route: 042
     Dates: start: 20161109, end: 20161109
  11. DEXAMETHASONE. [Concomitant]
     Active Substance: DEXAMETHASONE
     Indication: STOMATITIS
     Dosage: 5 MG, QS
     Route: 061
     Dates: start: 20161207, end: 20161214
  12. TREMELIMUMAB. [Suspect]
     Active Substance: TREMELIMUMAB
     Indication: BLADDER TRANSITIONAL CELL CARCINOMA
     Dosage: 75 MG, Q4WEEKS
     Route: 042
     Dates: start: 20160913, end: 20160913
  13. GEMCITABINE HYDROCHLORIDE. [Suspect]
     Active Substance: GEMCITABINE HYDROCHLORIDE
     Indication: DISEASE PROGRESSION
     Dosage: UNK
     Route: 042
     Dates: start: 20161207
  14. MEGESTROL [Concomitant]
     Active Substance: MEGESTROL
     Indication: DECREASED APPETITE
     Dosage: 20 ML, 3X/DAY
     Route: 048
     Dates: start: 20161207
  15. CISPLATIN. [Suspect]
     Active Substance: CISPLATIN
     Indication: DISEASE PROGRESSION
     Dosage: UNK
     Route: 042
     Dates: start: 20161207
  16. SILVER SULFADIAZENE [Concomitant]
     Active Substance: SILVER SULFADIAZINE
     Dosage: 50 G, 2X/DAY
     Route: 061
     Dates: start: 20161125
  17. MEDI4736 [Suspect]
     Active Substance: DURVALUMAB
     Indication: BLADDER TRANSITIONAL CELL CARCINOMA
     Dosage: 1.5 G, Q4WEEKS
     Route: 042
     Dates: start: 20160913, end: 20160913
  18. FLURBIPROFEN. [Concomitant]
     Active Substance: FLURBIPROFEN
     Indication: PAIN
     Dosage: 1 PI
     Route: 061
     Dates: start: 20160826

REACTIONS (1)
  - Small intestinal obstruction [Not Recovered/Not Resolved]

NARRATIVE: CASE EVENT DATE: 20161213
